FAERS Safety Report 5214946-8 (Version None)
Quarter: 2007Q1

REPORT INFORMATION
  Report Type: 
  Country: None (occurrence: None)
  Receive Date: 20070122
  Receipt Date: 20070110
  Transmission Date: 20070707
  Serious: Yes (Other)
  Sender: FDA-Public Use
  Company Number: JP-PFIZER INC-2006154676

PATIENT
  Sex: Female
  Weight: 46 kg

DRUGS (3)
  1. SULFASALAZINE [Suspect]
     Indication: COLITIS ULCERATIVE
     Route: 048
     Dates: start: 20061114, end: 20061213
  2. MESALAZINE [Concomitant]
  3. BIOFERMIN [Concomitant]
     Route: 048

REACTIONS (2)
  - DRUG HYPERSENSITIVITY [None]
  - HEPATIC FUNCTION ABNORMAL [None]
